FAERS Safety Report 8439825 (Version 3)
Quarter: 2012Q4

REPORT INFORMATION
  Report Type: 
  Country: US (occurrence: US)
  Receive Date: 20120305
  Receipt Date: 20120912
  Transmission Date: 20130627
  Serious: Yes (Hospitalization)
  Sender: FDA-Public Use
  Company Number: US-BAYER-2012-019069

PATIENT
  Age: 50 Year
  Sex: Female
  Weight: 104.31 kg

DRUGS (2)
  1. YAZ [Suspect]
     Indication: PREMENSTRUAL SYNDROME
     Dosage: UNK
     Dates: start: 200712, end: 20091031
  2. YAZ [Suspect]
     Indication: MENORRHAGIA

REACTIONS (3)
  - Deep vein thrombosis [None]
  - Pulmonary embolism [None]
  - Dyspnoea [None]
